FAERS Safety Report 5973733-3 (Version None)
Quarter: 2008Q4

REPORT INFORMATION
  Report Type: 
  Country: None (occurrence: None)
  Receive Date: 20081201
  Receipt Date: 20081128
  Transmission Date: 20090506
  Serious: Yes (Death)
  Sender: FDA-Public Use
  Company Number: NO-B.I. PHARMACEUTICALS,INC./RIDGEFIELD-2008-SW-00310NO

PATIENT
  Sex: Female

DRUGS (4)
  1. PERSANTINE [Suspect]
     Indication: ISCHAEMIC HEART DISEASE PROPHYLAXIS
     Dosage: 2ANZ
     Route: 048
     Dates: start: 20070301, end: 20081106
  2. PLAVIX [Suspect]
     Indication: ANGINA PECTORIS
     Route: 048
     Dates: start: 20081106, end: 20081106
  3. ALBYL-E [Suspect]
     Indication: ANGINA PECTORIS
     Route: 048
     Dates: start: 20081106, end: 20081106
  4. MAREVAN [Concomitant]
     Indication: ATRIAL FIBRILLATION
     Route: 048
     Dates: start: 20081107, end: 20081107

REACTIONS (1)
  - CEREBRAL HAEMORRHAGE [None]
